FAERS Safety Report 5108531-6 (Version None)
Quarter: 2006Q3

REPORT INFORMATION
  Report Type: 
  Country: None (occurrence: None)
  Receive Date: 20060914
  Receipt Date: 20060830
  Transmission Date: 20061208
  Serious: Yes (Hospitalization)
  Sender: FDA-Public Use
  Company Number: 36237

PATIENT
  Age: 27 Year
  Sex: Male

DRUGS (7)
  1. TRIMETHOPRIM SULFATE/POLYMYXIN B SULFATE OPTHALMIC SOLUTION [Suspect]
     Indication: PROPHYLAXIS
     Route: 048
     Dates: start: 20040316, end: 20040501
  2. PREDNISOLONE [Concomitant]
  3. ACETAMINOPHEN [Concomitant]
  4. GATIFLOXACIN [Concomitant]
  5. LOXOPROFEN [Concomitant]
  6. AZITHROMYCIN [Concomitant]
  7. METHYLPREDNISOLONE [Concomitant]

REACTIONS (13)
  - BLOOD IMMUNOGLOBULIN E INCREASED [None]
  - BLOOD IMMUNOGLOBULIN G INCREASED [None]
  - BLOOD LACTATE DEHYDROGENASE INCREASED [None]
  - CYTOMEGALOVIRUS ANTIGEN POSITIVE [None]
  - DRUG HYPERSENSITIVITY [None]
  - EPSTEIN-BARR VIRUS ANTIBODY POSITIVE [None]
  - HEPATOSPLENOMEGALY [None]
  - HUMAN HERPESVIRUS 6 INFECTION [None]
  - HYPERKERATOSIS [None]
  - LYMPHOCYTE MORPHOLOGY ABNORMAL [None]
  - LYMPHOCYTE STIMULATION TEST POSITIVE [None]
  - RASH MACULO-PAPULAR [None]
  - SKIN OEDEMA [None]
